FAERS Safety Report 22598348 (Version 3)
Quarter: 2023Q2

REPORT INFORMATION
  Report Type: Spontaneous
  Country: US (occurrence: None)
  Receive Date: 20230614
  Receipt Date: 20230617
  Transmission Date: 20230721
  Serious: Yes (Other)
  Sender: FDA-Public Use
  Company Number: US-ROCHE-3366670

PATIENT
  Age: 63 Year
  Sex: Male

DRUGS (3)
  1. RITUXAN [Suspect]
     Active Substance: RITUXIMAB
     Indication: Chronic lymphocytic leukaemia
     Route: 041
     Dates: start: 201505, end: 201509
  2. IMBRUVICA [Concomitant]
     Active Substance: IBRUTINIB
     Dates: start: 202211
  3. ALLOPURINOL [Concomitant]
     Active Substance: ALLOPURINOL
     Dates: start: 202211

REACTIONS (4)
  - Chronic lymphocytic leukaemia recurrent [Not Recovered/Not Resolved]
  - Soft tissue injury [Unknown]
  - Hip fracture [Unknown]
  - Anxiety disorder [Unknown]

NARRATIVE: CASE EVENT DATE: 20210704
